FAERS Safety Report 16042978 (Version 1)
Quarter: 2019Q1

REPORT INFORMATION
  Report Type: Spontaneous
  Country: NL (occurrence: NL)
  Receive Date: 20190306
  Receipt Date: 20190306
  Transmission Date: 20190418
  Serious: Yes (Other)
  Sender: FDA-Public Use
  Company Number: NL-MYLANLABS-2019M1020309

PATIENT
  Sex: Female
  Weight: 67 kg

DRUGS (3)
  1. SIMVASTATIN. [Suspect]
     Active Substance: SIMVASTATIN
     Indication: PRODUCT USED FOR UNKNOWN INDICATION
     Dosage: 40 MILLIGRAM, QD (1XDAAGS 1 TABLET VAN ELK MEDICIJN)
     Route: 048
     Dates: start: 20180411, end: 20180709
  2. GREPID [Suspect]
     Active Substance: CLOPIDOGREL BESILATE
     Indication: PRODUCT USED FOR UNKNOWN INDICATION
     Dosage: 75 MILLIGRAM, QD (1XDAAGS 1 TABLET VAN ELK MEDICIJN)
     Route: 048
  3. TEVETEN [Suspect]
     Active Substance: EPROSARTAN MESYLATE
     Indication: PRODUCT USED FOR UNKNOWN INDICATION
     Dosage: 1 DOSAGE FORM, QD (1XDAAGS 1 TABLET VAN ELK MEDICIJN)
     Route: 048

REACTIONS (6)
  - Hypokalaemia [Recovering/Resolving]
  - Pain in extremity [Recovering/Resolving]
  - Asthenia [Recovering/Resolving]
  - Hyponatraemia [Recovering/Resolving]
  - Hepatitis [Recovering/Resolving]
  - Abdominal pain upper [Recovering/Resolving]
